FAERS Safety Report 24091439 (Version 1)
Quarter: 2024Q3

REPORT INFORMATION
  Report Type: Report from Study
  Country: US (occurrence: US)
  Receive Date: 20240715
  Receipt Date: 20240715
  Transmission Date: 20241016
  Serious: No
  Sender: Day One Biopharmaceuticals
  Company Number: US-DAY ONE BIOPHARMACEUTICALS, INC.-2024US000404

PATIENT
  Age: 41 Year
  Sex: Male

DRUGS (2)
  1. OJEMDA [Suspect]
     Active Substance: TOVORAFENIB
     Indication: Brain neoplasm malignant
     Dosage: 1 TABLET
     Route: 065
  2. OJEMDA [Suspect]
     Active Substance: TOVORAFENIB
     Dosage: 6 TABLETS
     Route: 065
     Dates: start: 20240702

REACTIONS (1)
  - Accidental underdose [Unknown]
